FAERS Safety Report 23616467 (Version 1)
Quarter: 2024Q1

REPORT INFORMATION
  Report Type: Spontaneous
  Country: US (occurrence: None)
  Receive Date: 20240308
  Receipt Date: 20240308
  Transmission Date: 20240410
  Serious: Yes (Life-Threatening)
  Sender: FDA-Public Use
  Company Number: None

PATIENT
  Age: 47 Year
  Sex: Female
  Weight: 80 kg

DRUGS (1)
  1. VENOFER [Suspect]
     Active Substance: IRON SUCROSE
     Dosage: 200 MG EVERY 7 DAYS INTRAVENOUS DRIP?
     Route: 041

REACTIONS (3)
  - Infusion related reaction [None]
  - Supraventricular tachycardia [None]
  - Throat tightness [None]

NARRATIVE: CASE EVENT DATE: 20240301
